FAERS Safety Report 5443049-2 (Version None)
Quarter: 2007Q3

REPORT INFORMATION
  Report Type: 
  Country: None (occurrence: None)
  Receive Date: 20070905
  Receipt Date: 20070830
  Transmission Date: 20080115
  Serious: Yes (Life-Threatening)
  Sender: FDA-Public Use
  Company Number: PHHO2006IN04365

PATIENT
  Age: 58 Year
  Sex: Male
  Weight: 59 kg

DRUGS (4)
  1. GLEEVEC [Suspect]
     Indication: CHRONIC MYELOID LEUKAEMIA
     Dosage: 400 MG, QD
     Route: 048
     Dates: start: 20051115
  2. GLEEVEC [Suspect]
     Dosage: UNK, NO TREATMENT
  3. GLEEVEC [Suspect]
     Dosage: 200 MG, QD
     Route: 048
  4. GLEEVEC [Suspect]
     Dosage: UNK, NO TREATMENT

REACTIONS (13)
  - ACANTHOSIS [None]
  - BREAST TENDERNESS [None]
  - DERMATITIS EXFOLIATIVE [None]
  - EOSINOPHILIA [None]
  - ERYTHEMA [None]
  - LYMPHADENOPATHY [None]
  - LYMPHOCYTIC INFILTRATION [None]
  - OEDEMA PERIPHERAL [None]
  - PARAKERATOSIS [None]
  - PERIORBITAL OEDEMA [None]
  - PRURITUS GENERALISED [None]
  - RASH ERYTHEMATOUS [None]
  - SWELLING FACE [None]
